FAERS Safety Report 5490917-1 (Version None)
Quarter: 2007Q4

REPORT INFORMATION
  Report Type: 
  Country: None (occurrence: None)
  Receive Date: 20071019
  Receipt Date: 20071009
  Transmission Date: 20080405
  Serious: Yes (Hospitalization)
  Sender: FDA-Public Use
  Company Number: US-AMGEN-QUU247067

PATIENT

DRUGS (2)
  1. ENBREL [Suspect]
     Indication: JUVENILE ARTHRITIS
     Route: 058
  2. UNSPECIFIED NON-STEROIDAL ANTI-INFLAMMATORY AGENT [Suspect]

REACTIONS (1)
  - RENAL FAILURE CHRONIC [None]
